FAERS Safety Report 18607872 (Version 2)
Quarter: 2021Q1

REPORT INFORMATION
  Report Type: Spontaneous
  Country: US (occurrence: US)
  Receive Date: 20201211
  Receipt Date: 20210201
  Transmission Date: 20210419
  Serious: Yes (Death, Hospitalization)
  Sender: FDA-Public Use
  Company Number: US-SEATTLE GENETICS-2020SGN05465

PATIENT
  Age: 37 Year
  Sex: Female

DRUGS (1)
  1. TUKYSA [Suspect]
     Active Substance: TUCATINIB
     Indication: BREAST CANCER
     Dosage: UNK
     Dates: start: 20201007, end: 20201123

REACTIONS (3)
  - Pulmonary hypertension [Fatal]
  - Presyncope [Fatal]
  - Right ventricular diastolic collapse [Fatal]

NARRATIVE: CASE EVENT DATE: 202011
